FAERS Safety Report 9053439 (Version 2)
Quarter: 2013Q2

REPORT INFORMATION
  Report Type: Spontaneous
  Country: FR (occurrence: FR)
  Receive Date: 20130208
  Receipt Date: 20130417
  Transmission Date: 20140414
  Serious: Yes (Other)
  Sender: FDA-Public Use
  Company Number: FR-BRISTOL-MYERS SQUIBB COMPANY-17336124

PATIENT
  Age: 49 Year
  Sex: Male

DRUGS (3)
  1. PRAVADUAL [Suspect]
     Indication: HYPERCHOLESTEROLAEMIA
     Dosage: TABLETS
     Route: 048
     Dates: start: 2006, end: 201202
  2. FENOFIBRATE [Suspect]
     Dates: start: 201207, end: 201209
  3. APROVEL [Concomitant]
     Route: 048
     Dates: start: 200604

REACTIONS (5)
  - Libido decreased [Unknown]
  - Erectile dysfunction [Unknown]
  - Androgen deficiency [Unknown]
  - Depression [Unknown]
  - Blood testosterone decreased [Unknown]
